FAERS Safety Report 4960778-5 (Version None)
Quarter: 2006Q2

REPORT INFORMATION
  Report Type: 
  Country: None (occurrence: None)
  Receive Date: 20060403
  Receipt Date: 20051020
  Transmission Date: 20061013
  Serious: Yes (Hospitalization)
  Sender: FDA-Public Use
  Company Number: US-MERCK-0510USA08438

PATIENT
  Age: 53 Year
  Sex: Male
  Weight: 90 kg

DRUGS (2)
  1. VIOXX [Suspect]
     Indication: BACK PAIN
     Route: 048
     Dates: start: 19991121, end: 20040930
  2. VIOXX [Suspect]
     Indication: ARTHRITIS
     Route: 048
     Dates: start: 19991121, end: 20040930

REACTIONS (10)
  - ACCIDENTAL OVERDOSE [None]
  - ANAEMIA [None]
  - ANGINA PECTORIS [None]
  - CATARACT [None]
  - COMA [None]
  - DRUG SCREEN POSITIVE [None]
  - DYSPNOEA [None]
  - EYE PAIN [None]
  - MYOCARDIAL INFARCTION [None]
  - TRANSIENT ISCHAEMIC ATTACK [None]
